FAERS Safety Report 5937905-6 (Version None)
Quarter: 2008Q4

REPORT INFORMATION
  Report Type: 
  Country: None (occurrence: None)
  Receive Date: 20081031
  Receipt Date: 20081010
  Transmission Date: 20090506
  Serious: Yes (Other)
  Sender: FDA-Public Use
  Company Number: US-BAUSCH-2008BL004571

PATIENT
  Sex: Male

DRUGS (1)
  1. ADVANCED EYE RELIEF/EYE WASH [Suspect]
     Indication: EYE IRRITATION
     Route: 047
     Dates: start: 20061001, end: 20061001

REACTIONS (1)
  - KERATITIS FUNGAL [None]
